FAERS Safety Report 6564302-5 (Version None)
Quarter: 2010Q1

REPORT INFORMATION
  Report Type: 
  Country: None (occurrence: None)
  Receive Date: 20100201
  Receipt Date: 20090416
  Transmission Date: 20100710
  Serious: Yes (Disabling)
  Sender: FDA-Public Use
  Company Number: US-JNJFOC-20081103082

PATIENT
  Sex: Male

DRUGS (8)
  1. LEVAQUIN [Suspect]
     Indication: PNEUMONIA
     Route: 042
  2. LEVAQUIN [Suspect]
     Indication: BACTERIAL INFECTION
     Route: 042
  3. LEVAQUIN [Suspect]
     Indication: DRUG USE FOR UNKNOWN INDICATION
     Route: 048
  4. SOLU-MEDROL [Suspect]
     Indication: CHRONIC OBSTRUCTIVE PULMONARY DISEASE
     Route: 042
  5. PREDNISONE [Suspect]
     Indication: DRUG USE FOR UNKNOWN INDICATION
     Route: 048
  6. PREDNISONE [Suspect]
     Route: 048
  7. PREDNISONE [Suspect]
     Route: 048
  8. PREDNISONE [Suspect]
     Route: 048

REACTIONS (5)
  - DEEP VEIN THROMBOSIS [None]
  - FOOT DEFORMITY [None]
  - MUSCLE MASS [None]
  - TENDON RUPTURE [None]
  - TENDONITIS [None]
